FAERS Safety Report 8207138-1 (Version None)
Quarter: 2012Q1

REPORT INFORMATION
  Report Type: 
  Country: None (occurrence: None)
  Receive Date: 20120314
  Receipt Date: 20120312
  Transmission Date: 20120608
  Serious: Yes (Other)
  Sender: FDA-Public Use
  Company Number: US-PFIZER INC-2012065293

PATIENT
  Age: 66 Year
  Sex: Female
  Weight: 77 kg

DRUGS (2)
  1. FLECTOR [Suspect]
     Indication: SPONDYLITIS
     Dosage: UNK
     Route: 062
     Dates: start: 20120305, end: 20120301
  2. SYNTHROID [Concomitant]
     Indication: THYROID DISORDER
     Dosage: UNK

REACTIONS (2)
  - ULCER HAEMORRHAGE [None]
  - HYPERSENSITIVITY [None]
